FAERS Safety Report 12008046 (Version 1)
Quarter: 2016Q1

REPORT INFORMATION
  Report Type: Spontaneous
  Country: US (occurrence: US)
  Receive Date: 20160205
  Receipt Date: 20160205
  Transmission Date: 20160526
  Serious: No
  Sender: FDA-Public Use
  Company Number: US-SERB S.A.S.-1047355

PATIENT
  Age: 50 Year
  Sex: Female

DRUGS (3)
  1. ONDANSETRON [Concomitant]
     Active Substance: ONDANSETRON
  2. ALBUTEROL. [Concomitant]
     Active Substance: ALBUTEROL
  3. CYANOKIT [Suspect]
     Active Substance: HYDROXOCOBALAMIN
     Indication: ACCIDENTAL POISONING
     Route: 042

REACTIONS (1)
  - Blood pressure increased [Unknown]
